FAERS Safety Report 19827726 (Version 2)
Quarter: 2021Q4

REPORT INFORMATION
  Report Type: Spontaneous
  Country: CA (occurrence: CA)
  Receive Date: 20210914
  Receipt Date: 20211101
  Transmission Date: 20220303
  Serious: Yes (Hospitalization, Other)
  Sender: FDA-Public Use
  Company Number: CA-SA-SAC20210909000907

PATIENT
  Age: 78 Year
  Sex: Male

DRUGS (2)
  1. JEVTANA [Suspect]
     Active Substance: CABAZITAXEL
     Indication: Neoplasm prostate
     Dosage: UNK
     Route: 041
     Dates: start: 20201127, end: 20201127
  2. PREDNISONE [Suspect]
     Active Substance: PREDNISONE
     Indication: Neoplasm prostate
     Dosage: UNK
     Route: 065
     Dates: start: 20201127, end: 20201127

REACTIONS (1)
  - Acute myocardial infarction [Recovered/Resolved]

NARRATIVE: CASE EVENT DATE: 20201129
